FAERS Safety Report 7743770-7 (Version None)
Quarter: 2011Q3

REPORT INFORMATION
  Report Type: 
  Country: None (occurrence: None)
  Receive Date: 20110909
  Receipt Date: 20110909
  Transmission Date: 20111222
  Serious: Yes (Other)
  Sender: FDA-Public Use
  Company Number: None

PATIENT
  Age: 81 Year
  Sex: Female
  Weight: 64.8644 kg

DRUGS (1)
  1. PRADAXA [Suspect]
     Dosage: 150 MG 2 A DAY ORAL
     Route: 048
     Dates: start: 20110501, end: 20110530

REACTIONS (3)
  - WEIGHT DECREASED [None]
  - DYSPEPSIA [None]
  - ABDOMINAL DISCOMFORT [None]
